FAERS Safety Report 20861284 (Version 1)
Quarter: 2022Q2

REPORT INFORMATION
  Report Type: Spontaneous
  Country: None (occurrence: US)
  Receive Date: 20220523
  Receipt Date: 20220523
  Transmission Date: 20220721
  Serious: No
  Sender: FDA-Public Use
  Company Number: US-BIOLOGICAL E. LTD-2129041

PATIENT
  Age: 68 Year
  Sex: Female

DRUGS (7)
  1. FOSAPREPITANT [Suspect]
     Active Substance: FOSAPREPITANT
     Indication: Chemotherapy side effect prophylaxis
     Route: 065
     Dates: start: 20220509
  2. CRESTOR [Concomitant]
     Active Substance: ROSUVASTATIN CALCIUM
     Route: 065
  3. METFORMIN [Concomitant]
     Active Substance: METFORMIN HYDROCHLORIDE
     Route: 065
  4. LANTUS [Concomitant]
     Active Substance: INSULIN GLARGINE
     Route: 065
  5. Locartin [Concomitant]
     Route: 065
  6. PREMARIN [Concomitant]
     Active Substance: ESTROGENS, CONJUGATED
     Route: 065
  7. CULTURELLE [Concomitant]
     Active Substance: LACTOBACILLUS RHAMNOSUS
     Route: 065

REACTIONS (7)
  - Unresponsive to stimuli [Unknown]
  - Bradycardia [Unknown]
  - Chest pain [Unknown]
  - Blood pressure decreased [Unknown]
  - Flushing [Unknown]
  - Incoherent [Unknown]
  - Nausea [Unknown]

NARRATIVE: CASE EVENT DATE: 20220509
